FAERS Safety Report 20515141 (Version 2)
Quarter: 2022Q1

REPORT INFORMATION
  Report Type: Spontaneous
  Country: US (occurrence: US)
  Receive Date: 20220224
  Receipt Date: 20220301
  Transmission Date: 20220423
  Serious: Yes (Hospitalization)
  Sender: FDA-Public Use
  Company Number: US-TAKEDA-2022TUS010911

PATIENT
  Age: 75 Year
  Sex: Female
  Weight: 70 kg

DRUGS (2)
  1. NINLARO [Suspect]
     Active Substance: IXAZOMIB CITRATE
     Indication: Plasma cell myeloma
     Dosage: 3 MILLIGRAM
     Route: 048
     Dates: start: 202201, end: 202202
  2. VELCADE [Suspect]
     Active Substance: BORTEZOMIB
     Indication: Plasma cell myeloma
     Dosage: UNK
     Route: 065
     Dates: start: 202110

REACTIONS (10)
  - Asthenia [Unknown]
  - Peripheral swelling [Unknown]
  - Tachycardia [Unknown]
  - Vulvovaginal burning sensation [Unknown]
  - Arthralgia [Unknown]
  - Hypoaesthesia [Unknown]
  - Vitiligo [Unknown]
  - Joint swelling [Unknown]
  - Palpitations [Unknown]
  - Blood pressure abnormal [Recovered/Resolved]

NARRATIVE: CASE EVENT DATE: 20220206
